FAERS Safety Report 10996483 (Version 1)
Quarter: 2015Q2

REPORT INFORMATION
  Report Type: Spontaneous
  Country: US (occurrence: None)
  Receive Date: 20150407
  Receipt Date: 20150407
  Transmission Date: 20150821
  Serious: Yes (Other)
  Sender: FDA-Public Use
  Company Number: None

PATIENT
  Age: 19 Year
  Sex: Male
  Weight: 53.52 kg

DRUGS (13)
  1. CLOBETASOL PROPIONATE CREAM [Concomitant]
     Active Substance: CLOBETASOL PROPIONATE
  2. CLARTIN [Concomitant]
  3. ENDOCENT [Concomitant]
  4. FLUVIRIN 2014-2015 [Suspect]
     Active Substance: INFLUENZA A VIRUS A/CHRISTCHURCH/16/2010 NIB-74 (H1N1) ANTIGEN (PROPIOLACTONE INACTIVATED)\INFLUENZA A VIRUS A/VICTORIA/361/2011 IVR-165 (H3N2) ANTIGEN (PROPIOLACTONE INACTIVATED)\INFLUENZA B VIRUS B/HUBEI-WUJIAGANG/158/2009 BX-39 ANTIGEN (PROPIOLACTONE INACTIVATED)\ISOPROPYL ALCOHOL
     Indication: INFLUENZA
     Dates: start: 20140917
  5. DOXYCYC HYC [Concomitant]
  6. CLINDAMYCIN PHOSPHAT [Concomitant]
  7. BETAMETHASON DIPROPIONATE [Concomitant]
  8. VAX 23 [Suspect]
     Active Substance: UNSPECIFIED INGREDIENT
  9. LASIX [Concomitant]
     Active Substance: FUROSEMIDE
  10. COLCHINE [Concomitant]
     Active Substance: COLCHICINE
  11. LEVOFLOXACIN. [Concomitant]
     Active Substance: LEVOFLOXACIN
  12. OXYGEN. [Concomitant]
     Active Substance: OXYGEN
  13. TUMS [Concomitant]
     Active Substance: CALCIUM CARBONATE

REACTIONS (6)
  - Pneumonia [None]
  - Skin cancer [None]
  - Rash [None]
  - Miliaria [None]
  - Skin reaction [None]
  - Scar [None]

NARRATIVE: CASE EVENT DATE: 20141019
